FAERS Safety Report 20736498 (Version 11)
Quarter: 2023Q2

REPORT INFORMATION
  Report Type: Spontaneous
  Country: US (occurrence: US)
  Receive Date: 20220421
  Receipt Date: 20230525
  Transmission Date: 20230722
  Serious: Yes (Hospitalization, Other)
  Sender: FDA-Public Use
  Company Number: US-PFIZER INC-202200197560

PATIENT
  Age: 67 Year
  Sex: Female

DRUGS (4)
  1. IBRANCE [Suspect]
     Active Substance: PALBOCICLIB
     Indication: Breast cancer female
     Dosage: 75 MG, CYCLIC
  2. IBRANCE [Suspect]
     Active Substance: PALBOCICLIB
     Dosage: 125 MG
  3. IBRANCE [Suspect]
     Active Substance: PALBOCICLIB
     Dosage: 100 MG
  4. IBRANCE [Suspect]
     Active Substance: PALBOCICLIB
     Dosage: 75 MG

REACTIONS (20)
  - Pneumonia [Unknown]
  - Influenza [Unknown]
  - Anxiety [Unknown]
  - Pain [Unknown]
  - Abdominal pain upper [Unknown]
  - Nausea [Unknown]
  - Stress [Unknown]
  - Depressed mood [Unknown]
  - Fall [Unknown]
  - Dysphagia [Unknown]
  - Back pain [Unknown]
  - Pain in extremity [Unknown]
  - Myalgia [Unknown]
  - Feeling abnormal [Unknown]
  - Mental disorder [Unknown]
  - Eating disorder [Unknown]
  - Anger [Unknown]
  - Illness [Unknown]
  - Hypoaesthesia [Unknown]
  - Product dispensing error [Unknown]
